FAERS Safety Report 7120931-1 (Version None)
Quarter: 2010Q4

REPORT INFORMATION
  Report Type: 
  Country: None (occurrence: None)
  Receive Date: 20101124
  Receipt Date: 20101119
  Transmission Date: 20110411
  Serious: Yes (Hospitalization)
  Sender: FDA-Public Use
  Company Number: US-KINGPHARMUSA00001-K200900879

PATIENT
  Age: 65 Year
  Sex: Female

DRUGS (17)
  1. ALTACE [Suspect]
     Indication: HYPERTENSION
     Dosage: 2.5 MG, QD
     Route: 048
     Dates: start: 20080901, end: 20081009
  2. CORDAREX [Suspect]
     Indication: ATRIAL FIBRILLATION
     Dosage: 200 MG, QD
     Route: 048
     Dates: start: 20080901, end: 20081010
  3. SPIRONOLACTONE [Suspect]
     Indication: HYPERTENSION
     Dosage: 100 MG, QD
     Route: 048
     Dates: start: 20080901, end: 20081009
  4. ZYVOX [Suspect]
     Indication: INTERVERTEBRAL DISCITIS
     Dosage: 600 MG, BID
     Route: 048
     Dates: start: 20080922, end: 20081009
  5. ZYVOX [Suspect]
     Dosage: 600 MG, BID
     Route: 048
     Dates: start: 20081025, end: 20090127
  6. TOREM [Suspect]
     Indication: HYPERTENSION
     Dosage: 10 MG, BID
     Route: 048
     Dates: start: 20090729
  7. XIPAMIDE [Suspect]
     Indication: HYPERTENSION
     Dosage: 10 MG, QD
     Route: 048
     Dates: start: 20080729, end: 20081008
  8. AMITRIPTYLINE HCL [Concomitant]
     Indication: PAIN
     Dosage: 100 MG, QD
     Route: 048
     Dates: start: 20080729, end: 20081008
  9. METOPROLOL SUCCINATE [Concomitant]
     Indication: HYPERTENSION
     Dosage: 100 MG, QD
     Route: 048
     Dates: start: 20080729, end: 20081008
  10. NOVALGIN [Concomitant]
     Indication: PAIN
     Dosage: 1500 MG, QD
     Route: 048
     Dates: start: 20080905, end: 20081009
  11. PARACETAMOL [Concomitant]
     Indication: PAIN
     Dosage: 3 G, UNK
     Route: 048
     Dates: start: 20080905, end: 20081003
  12. CLEXANE [Concomitant]
     Indication: THROMBOSIS PROPHYLAXIS
     Dosage: 60 MG, UNK
     Route: 058
     Dates: start: 20080729, end: 20081007
  13. DIGITOXIN [Concomitant]
     Indication: ATRIAL FIBRILLATION
     Dosage: 0.07 MG, QD
     Route: 048
     Dates: start: 20060101
  14. OMEPRAZOLE [Concomitant]
     Indication: PROPHYLAXIS AGAINST GASTROINTESTINAL ULCER
     Dosage: 40 MG, QD
     Route: 048
     Dates: start: 20061201
  15. OXYCODONE HCL [Concomitant]
     Indication: PAIN
     Dosage: 20 MG, QD
     Route: 048
     Dates: start: 20080901
  16. SIMVASTATIN [Concomitant]
     Indication: HYPERLIPIDAEMIA
     Dosage: 20 MG, QD
     Route: 048
     Dates: start: 20060101
  17. PHENPROCOUMON [Concomitant]
     Dosage: UNK
     Dates: start: 20000101, end: 20080901

REACTIONS (6)
  - DRUG INTERACTION [None]
  - NAUSEA [None]
  - OEDEMA PERIPHERAL [None]
  - RENAL FAILURE ACUTE [None]
  - TONGUE DRY [None]
  - VOMITING [None]
